FAERS Safety Report 11467844 (Version 2)
Quarter: 2015Q3

REPORT INFORMATION
  Report Type: Spontaneous
  Country: FR (occurrence: FR)
  Receive Date: 20150908
  Receipt Date: 20150924
  Transmission Date: 20151125
  Serious: Yes (Hospitalization)
  Sender: FDA-Public Use
  Company Number: FR-BRACCO-001927

PATIENT
  Age: 53 Year
  Sex: Female

DRUGS (3)
  1. DUROLANE [Suspect]
     Active Substance: HYALURONIC ACID
  2. IOPAMIRON [Suspect]
     Active Substance: IOPAMIDOL
     Indication: X-RAY WITH CONTRAST
     Route: 014
     Dates: start: 20150708, end: 20150708
  3. ALTIM [Suspect]
     Active Substance: CORTIVAZOL
     Indication: OSTEOARTHRITIS
     Route: 014
     Dates: start: 20150708, end: 20150708

REACTIONS (1)
  - Arthritis [Not Recovered/Not Resolved]

NARRATIVE: CASE EVENT DATE: 20150708
